FAERS Safety Report 17305918 (Version 2)
Quarter: 2022Q2

REPORT INFORMATION
  Report Type: Spontaneous
  Country: SE (occurrence: SE)
  Receive Date: 20200123
  Receipt Date: 20220517
  Transmission Date: 20220721
  Serious: Yes (Other)
  Sender: FDA-Public Use
  Company Number: SE-002147023-PHHY2019SE207868

PATIENT
  Age: 37 Year
  Sex: Female

DRUGS (4)
  1. SUMATRIPTAN [Suspect]
     Active Substance: SUMATRIPTAN
     Indication: Product used for unknown indication
     Dosage: UNK
     Route: 065
  2. METOPROLOL [Suspect]
     Active Substance: METOPROLOL
     Indication: Product used for unknown indication
     Dosage: UNK
     Route: 065
  3. METHYLPHENIDATE [Suspect]
     Active Substance: METHYLPHENIDATE
     Indication: Product used for unknown indication
     Dosage: 120 MILLIGRAM, QD (80-120 MG PER DAY)
     Route: 065
  4. METHYLPHENIDATE [Suspect]
     Active Substance: METHYLPHENIDATE
     Dosage: 20 MILLIGRAM
     Route: 065

REACTIONS (3)
  - Trismus [Recovered/Resolved]
  - Pain in jaw [Recovered/Resolved]
  - Withdrawal syndrome [Unknown]
